FAERS Safety Report 21322938 (Version 2)
Quarter: 2022Q3

REPORT INFORMATION
  Report Type: Report from Study
  Country: AU (occurrence: AU)
  Receive Date: 20220912
  Receipt Date: 20220929
  Transmission Date: 20221027
  Serious: Yes (Death, Hospitalization)
  Sender: FDA-Public Use
  Company Number: AU-ABBVIE-22K-008-4529341-00

PATIENT
  Age: 71 Year
  Sex: Male

DRUGS (3)
  1. CARBIDOPA\LEVODOPA [Suspect]
     Active Substance: CARBIDOPA\LEVODOPA
     Indication: Parkinson^s disease
     Route: 050
     Dates: start: 20210727
  2. CARBIDOPA\LEVODOPA [Suspect]
     Active Substance: CARBIDOPA\LEVODOPA
  3. OXYGEN [Concomitant]
     Active Substance: OXYGEN
     Indication: Aspiration

REACTIONS (2)
  - Death [Fatal]
  - Aspiration [Unknown]

NARRATIVE: CASE EVENT DATE: 20220923
